FAERS Safety Report 17987999 (Version 1)
Quarter: 2020Q3

REPORT INFORMATION
  Report Type: Report from Study
  Country: KR (occurrence: KR)
  Receive Date: 20200707
  Receipt Date: 20200707
  Transmission Date: 20201103
  Serious: Yes (Death)
  Sender: FDA-Public Use
  Company Number: KR-TEVA-2020-KR-1796730

PATIENT
  Age: 3 Year
  Sex: Male

DRUGS (6)
  1. ETOPOSIDE. [Suspect]
     Active Substance: ETOPOSIDE
     Indication: HAEMATOPOIETIC STEM CELL MOBILISATION
     Dosage: ON DAYS 0, 1, AND 2 FOR PERIPHERAL BLOOD STEM CELL MOBILISATION
     Route: 065
  2. CARMUSTINE [BCNU] [Suspect]
     Active Substance: CARMUSTINE
     Indication: BONE MARROW CONDITIONING REGIMEN
     Dosage: ON DAYS ?8, ?7 AND ?6
     Route: 065
  3. CYCLOPHOSPHAMIDE. [Suspect]
     Active Substance: CYCLOPHOSPHAMIDE
     Indication: HAEMATOPOIETIC STEM CELL MOBILISATION
     Dosage: ON DAYS 0, 1, AND 2 FOR PERIPHERAL BLOOD STEM CELL MOBILISATION
     Route: 065
  4. ETOPOSIDE. [Suspect]
     Active Substance: ETOPOSIDE
     Indication: BONE MARROW CONDITIONING REGIMEN
     Dosage: AS TRANSPLANT CONDITIONING REGIMEN ON DAYS ?8, ?7, AND ?6
     Route: 065
  5. CYCLOPHOSPHAMIDE. [Suspect]
     Active Substance: CYCLOPHOSPHAMIDE
     Indication: BONE MARROW CONDITIONING REGIMEN
     Dosage: AS TRANSPLANT CONDITIONING REGIMEN; ON DAYS ?5, ?4, ?3, AND ?2
     Route: 065
  6. METHYLPREDNISOLONE. [Concomitant]
     Active Substance: METHYLPREDNISOLONE
     Indication: PROPHYLAXIS
     Dosage: ON DAYS ?9 TO ?2, THEN TAPERED OFF OVER 6 DAYS
     Route: 065

REACTIONS (2)
  - Pneumonitis [Fatal]
  - Respiratory failure [Fatal]
